FAERS Safety Report 14773813 (Version 2)
Quarter: 2018Q2

REPORT INFORMATION
  Report Type: Report from Study
  Country: FR (occurrence: FR)
  Receive Date: 20180418
  Receipt Date: 20180509
  Transmission Date: 20180711
  Serious: Yes (Hospitalization)
  Sender: FDA-Public Use
  Company Number: FR-ROCHE-2103495

PATIENT
  Age: 60 Year
  Sex: Female

DRUGS (3)
  1. SOPRAL [Concomitant]
     Route: 065
     Dates: start: 2007
  2. VITAMINE D [Concomitant]
     Route: 065
     Dates: start: 20131125
  3. TRASTUZUMAB. [Suspect]
     Active Substance: TRASTUZUMAB
     Indication: HER-2 POSITIVE BREAST CANCER
     Dosage: LAST DOSE PRIOR TO SAE WAS 21/OCT/2013.
     Route: 058
     Dates: start: 20121030

REACTIONS (1)
  - Small intestinal obstruction [Recovered/Resolved]

NARRATIVE: CASE EVENT DATE: 20161220
